FAERS Safety Report 9254907 (Version 1)
Quarter: 2013Q2

REPORT INFORMATION
  Report Type: Spontaneous
  Country: IE (occurrence: IE)
  Receive Date: 20130425
  Receipt Date: 20130425
  Transmission Date: 20140414
  Serious: Yes (Other)
  Sender: FDA-Public Use
  Company Number: IE-BAXTER-2013BAX011542

PATIENT
  Age: 32 Year
  Sex: Female

DRUGS (4)
  1. SODIUM CHLORIDE 0.9% W/V INTRAVENOUS INFUSION BP, POLYOLEFIN/POLYAMIDE [Suspect]
     Indication: CYSTIC FIBROSIS
     Route: 042
     Dates: start: 20130322, end: 20130323
  2. SODIUM CHLORIDE 0.9% W/V INTRAVENOUS INFUSION BP, POLYOLEFIN/POLYAMIDE [Suspect]
     Route: 042
     Dates: start: 20130322, end: 20130323
  3. COLISTIMETHATE [Suspect]
     Indication: CYSTIC FIBROSIS
     Route: 042
     Dates: start: 20130322, end: 20130323
  4. MEROPENEM [Concomitant]
     Indication: CYSTIC FIBROSIS
     Route: 042
     Dates: start: 20130322

REACTIONS (5)
  - Hypoaesthesia oral [Recovered/Resolved]
  - Hypoaesthesia oral [Recovered/Resolved]
  - Throat tightness [Recovered/Resolved]
  - Pain [Recovered/Resolved]
  - Lacrimation increased [Recovered/Resolved]
